FAERS Safety Report 14588045 (Version 2)
Quarter: 2018Q1

REPORT INFORMATION
  Report Type: Report from Study
  Country: US (occurrence: US)
  Receive Date: 20180301
  Receipt Date: 20180321
  Transmission Date: 20180509
  Serious: Yes (Hospitalization, Other)
  Sender: FDA-Public Use
  Company Number: US-JNJFOC-20180133236

PATIENT
  Age: 81 Year
  Sex: Female
  Weight: 51 kg

DRUGS (15)
  1. IMBRUVICA [Suspect]
     Active Substance: IBRUTINIB
     Indication: CHRONIC LYMPHOCYTIC LEUKAEMIA
     Route: 048
     Dates: start: 20180130
  2. SULTAMICILLIN [Suspect]
     Active Substance: SULTAMICILLIN
     Indication: INFECTION PROPHYLAXIS
     Route: 065
     Dates: start: 201801, end: 20180130
  3. TYLENOL [Concomitant]
     Active Substance: ACETAMINOPHEN
     Dosage: 325 MG, EVERY 6 HOURS
     Route: 048
  4. ZOFRAN [Concomitant]
     Active Substance: ONDANSETRON HYDROCHLORIDE
     Indication: VOMITING
     Dosage: 4 MG, 6 HOURS AS NEEDED
     Route: 048
  5. ECOTRIN [Suspect]
     Active Substance: ASPIRIN
     Indication: CORONARY ARTERY DISEASE
     Route: 048
     Dates: end: 20180131
  6. IMBRUVICA [Suspect]
     Active Substance: IBRUTINIB
     Indication: CHRONIC LYMPHOCYTIC LEUKAEMIA
     Route: 048
     Dates: end: 201801
  7. ECOTRIN [Suspect]
     Active Substance: ASPIRIN
     Indication: CORONARY ARTERY DISEASE
     Route: 048
     Dates: start: 201802
  8. PLAVIX [Suspect]
     Active Substance: CLOPIDOGREL BISULFATE
     Indication: CORONARY ARTERY DISEASE
     Route: 048
     Dates: end: 20180131
  9. SODIUM CHLORIDE. [Concomitant]
     Active Substance: SODIUM CHLORIDE
     Dosage: 500 MG, QD FOR 17 DAYS
     Route: 042
     Dates: end: 20180203
  10. ZOFRAN [Concomitant]
     Active Substance: ONDANSETRON HYDROCHLORIDE
     Indication: NAUSEA
     Dosage: 4 MG, 6 HOURS AS NEEDED
     Route: 048
  11. PLAVIX [Suspect]
     Active Substance: CLOPIDOGREL BISULFATE
     Indication: CORONARY ARTERY DISEASE
     Route: 048
     Dates: start: 201802
  12. HYDRODIURIL [Concomitant]
     Active Substance: HYDROCHLOROTHIAZIDE
     Dosage: 500000 UNITS, QID
     Route: 048
  13. SENOKOT [Concomitant]
     Active Substance: SENNOSIDES
     Indication: CONSTIPATION
     Dosage: 500 MG, QD FOR 17 DAYS
     Route: 048
     Dates: end: 20180202
  14. MYCOSTATIN [Concomitant]
     Active Substance: NYSTATIN
     Dosage: 500000 UNITS, QID
     Dates: end: 20180203
  15. ULTRAM [Concomitant]
     Active Substance: TRAMADOL HYDROCHLORIDE
     Dosage: 500 MG, QD FOR 17 DAYS
     Route: 048
     Dates: end: 20180127

REACTIONS (10)
  - Thrombocytopenia [Recovering/Resolving]
  - Urinary retention [Not Recovered/Not Resolved]
  - Arteriosclerosis coronary artery [Unknown]
  - Acute myocardial infarction [Recovered/Resolved]
  - Influenza [Recovered/Resolved]
  - Infectious pleural effusion [Unknown]
  - Skin atrophy [Unknown]
  - Ecchymosis [Unknown]
  - Streptococcal infection [Unknown]
  - Oral candidiasis [Recovering/Resolving]

NARRATIVE: CASE EVENT DATE: 201801
